FAERS Safety Report 24143468 (Version 1)
Quarter: 2024Q3

REPORT INFORMATION
  Report Type: Report from Study
  Country: US (occurrence: US)
  Receive Date: 20240727
  Receipt Date: 20240727
  Transmission Date: 20241017
  Serious: Yes (Hospitalization, Other)
  Sender: ABBVIE
  Company Number: US-ABBVIE-5841533

PATIENT
  Age: 67 Year
  Sex: Female

DRUGS (1)
  1. SKYRIZI [Suspect]
     Active Substance: RISANKIZUMAB-RZAA
     Indication: Product used for unknown indication
     Dosage: LAST ADMINISTRATION DOSE DATE: APR 2023
     Route: 058
     Dates: start: 20230423

REACTIONS (5)
  - Diverticulitis [Unknown]
  - Osteonecrosis [Unknown]
  - Fall [Unknown]
  - Shoulder fracture [Unknown]
  - Psoriasis [Unknown]

NARRATIVE: CASE EVENT DATE: 20240701
